FAERS Safety Report 6866974-4 (Version None)
Quarter: 2010Q3

REPORT INFORMATION
  Report Type: 
  Country: None (occurrence: None)
  Receive Date: 20100722
  Receipt Date: 20100712
  Transmission Date: 20110219
  Serious: Yes (Other)
  Sender: FDA-Public Use
  Company Number: CA-JNJFOC-20100704157

PATIENT
  Sex: Female
  Weight: 71.5 kg

DRUGS (13)
  1. REMICADE [Suspect]
     Indication: COLITIS ULCERATIVE
     Route: 042
  2. REMICADE [Suspect]
     Route: 042
  3. REMICADE [Suspect]
     Route: 042
  4. REMICADE [Suspect]
     Route: 042
  5. CALCIUM MAGNESIUM [Concomitant]
  6. IMURAN [Concomitant]
  7. BIRTH CONTROL PILL [Concomitant]
  8. HYDROCORTISONE [Concomitant]
  9. VITAMIN TAB [Concomitant]
  10. VITAMIN D [Concomitant]
  11. ESCITALOPRAM [Concomitant]
  12. WELLBUTRIN [Concomitant]
  13. IRON [Concomitant]

REACTIONS (5)
  - DIARRHOEA HAEMORRHAGIC [None]
  - HYPOAESTHESIA [None]
  - INFUSION RELATED REACTION [None]
  - INTESTINAL ULCER [None]
  - PARAESTHESIA [None]
